FAERS Safety Report 20562130 (Version 1)
Quarter: 2022Q1

REPORT INFORMATION
  Report Type: Spontaneous
  Country: US (occurrence: US)
  Receive Date: 20220307
  Receipt Date: 20220307
  Transmission Date: 20220423
  Serious: No
  Sender: FDA-Public Use
  Company Number: US-ELI_LILLY_AND_COMPANY-US202203002751

PATIENT
  Sex: Female

DRUGS (2)
  1. TRULICITY [Suspect]
     Active Substance: DULAGLUTIDE
     Indication: Product used for unknown indication
     Dosage: 0.75 MG, UNKNOWN
     Route: 065
  2. TRULICITY [Suspect]
     Active Substance: DULAGLUTIDE
     Dosage: 0.75 UNK
     Route: 065

REACTIONS (7)
  - Feeling abnormal [Unknown]
  - Nausea [Unknown]
  - Abdominal pain upper [Unknown]
  - Injection site mass [Unknown]
  - Injection site swelling [Unknown]
  - Incorrect dose administered [Unknown]
  - Product dose omission issue [Unknown]
